FAERS Safety Report 7358897-1 (Version None)
Quarter: 2011Q1

REPORT INFORMATION
  Report Type: 
  Country: None (occurrence: None)
  Receive Date: 20110317
  Receipt Date: 20110314
  Transmission Date: 20110831
  Serious: Yes (Hospitalization)
  Sender: FDA-Public Use
  Company Number: US-BRISTOL-MYERS SQUIBB COMPANY-15565021

PATIENT
  Age: 49 Year
  Sex: Female
  Weight: 85 kg

DRUGS (35)
  1. CETUXIMAB [Suspect]
     Indication: HEAD AND NECK CANCER
     Dosage: 9TH + MOST RECENT INF:9FEB11
     Route: 042
     Dates: start: 20101214, end: 20110209
  2. PANTOPRAZOLE SODIUM [Concomitant]
     Indication: PROPHYLAXIS
     Route: 065
     Dates: start: 20110111, end: 20110115
  3. MAGNESIUM OXIDE [Concomitant]
     Route: 065
     Dates: start: 20110209
  4. LIDOCAINE [Concomitant]
     Indication: MUCOSAL INFLAMMATION
     Dosage: MOUTH WASH
     Route: 048
     Dates: start: 20101217
  5. LORTAB [Concomitant]
     Route: 065
     Dates: start: 20100108
  6. DULOXETINE HYDROCHLORIDE [Concomitant]
     Route: 065
     Dates: start: 20101005
  7. MULTI-VITAMIN [Concomitant]
     Indication: PROPHYLAXIS
     Route: 065
     Dates: start: 20100108
  8. ONDANSETRON [Concomitant]
     Route: 065
     Dates: start: 20100524
  9. FENTANYL-100 [Concomitant]
     Route: 065
     Dates: start: 20101005
  10. ZOLPIDEM TARTRATE [Concomitant]
     Route: 065
     Dates: start: 20101005
  11. ACYCLOVIR [Concomitant]
     Route: 065
     Dates: start: 20110119
  12. LOSARTAN POTASSIUM [Concomitant]
     Route: 065
     Dates: start: 20101005
  13. ROSUVASTATIN CALCIUM [Concomitant]
     Route: 065
     Dates: start: 20100526
  14. DULOXETINE HYDROCHLORIDE [Concomitant]
     Route: 065
     Dates: start: 20101005
  15. MORPHINE [Concomitant]
     Route: 065
     Dates: start: 20110114, end: 20110114
  16. MAALOX [Concomitant]
     Indication: MUCOSAL INFLAMMATION
     Dosage: MOUTH WASH
     Route: 048
     Dates: start: 20101217
  17. METOCLOPRAMIDE HCL [Concomitant]
     Indication: PROPHYLAXIS
     Route: 065
     Dates: start: 20100325
  18. LORAZEPAM [Concomitant]
     Route: 065
     Dates: start: 20101215
  19. MINOCYCLINE HCL [Concomitant]
     Route: 065
     Dates: start: 20101228
  20. MAGNESIUM SULFATE [Concomitant]
     Route: 065
     Dates: start: 20110111, end: 20110115
  21. NYSTATIN MOUTHWASH [Concomitant]
     Indication: MUCOSAL INFLAMMATION
     Route: 048
     Dates: start: 20101217
  22. BENADRYL [Concomitant]
     Indication: MUCOSAL INFLAMMATION
     Dosage: MOUTH WASH
     Route: 048
     Dates: start: 20101217
  23. ONDANSETRON [Concomitant]
     Route: 065
     Dates: start: 20101215
  24. ENOXAPARIN SODIUM [Concomitant]
     Indication: PROPHYLAXIS
     Route: 065
     Dates: start: 20110111, end: 20110115
  25. SORBITOL [Concomitant]
     Route: 048
     Dates: start: 20110110
  26. FLUCONAZOLE [Concomitant]
     Route: 065
     Dates: start: 20110119
  27. EMLA [Concomitant]
     Indication: PROPHYLAXIS
     Dosage: CREAM
     Route: 065
     Dates: start: 20110119
  28. LANSOPRAZOLE [Concomitant]
     Indication: PROPHYLAXIS
     Route: 065
     Dates: start: 20100108
  29. PILOCARPINE [Concomitant]
     Route: 065
     Dates: start: 20100406
  30. PROCHLORPERAZINE [Concomitant]
     Route: 065
     Dates: start: 20101217
  31. MAGNESIUM [Concomitant]
     Dosage: 26JAN11-26JAN11 19JAN11-19JAN11
     Route: 065
     Dates: start: 20110119, end: 20110126
  32. CISPLATIN [Suspect]
     Indication: HEAD AND NECK CANCER
     Dosage: 3RD + MOST RECENT INF:1FEB11
     Route: 042
     Dates: start: 20101214, end: 20110201
  33. FLUOROURACIL [Suspect]
     Indication: HEAD AND NECK CANCER
     Dosage: 12TH + MOST RECENT INF:4FEB11
     Route: 042
     Dates: start: 20101214, end: 20110204
  34. POLYETHYLENE GLYCOL [Concomitant]
     Route: 065
     Dates: start: 20101214
  35. NEULASTA [Concomitant]
     Indication: PROPHYLAXIS
     Dosage: 17JAN11-17JAN11 7FEB11-7FEB11
     Route: 065
     Dates: start: 20110117, end: 20110207

REACTIONS (2)
  - PYREXIA [None]
  - PRODUCTIVE COUGH [None]
